FAERS Safety Report 21516001 (Version 3)
Quarter: 2023Q1

REPORT INFORMATION
  Report Type: Report from Study
  Country: US (occurrence: US)
  Receive Date: 20221027
  Receipt Date: 20230315
  Transmission Date: 20230418
  Serious: Yes (Disabling, Other)
  Sender: FDA-Public Use
  Company Number: US-ABBVIE-4175923

PATIENT
  Age: 72 Year
  Sex: Male

DRUGS (4)
  1. HUMIRA [Suspect]
     Active Substance: ADALIMUMAB
     Indication: Rheumatoid arthritis
     Route: 058
     Dates: start: 20020601
  2. Moderna covid 19 [Concomitant]
     Indication: COVID-19 immunisation
     Dosage: 1ST DOSE?FREQUENCY-ONE IN ONCE
     Route: 030
     Dates: start: 20210102, end: 20210102
  3. Moderna covid 19 [Concomitant]
     Indication: COVID-19 immunisation
     Dosage: 2ND DOSE?FREQUENCY-ONE IN ONCE
     Route: 030
     Dates: start: 20210215, end: 20210215
  4. Moderna covid 19 [Concomitant]
     Indication: COVID-19 immunisation
     Dosage: 3RD DOSE?FREQUENCY-ONE IN ONCE
     Route: 030
     Dates: start: 20210901, end: 20210901

REACTIONS (3)
  - Deafness [Not Recovered/Not Resolved]
  - Visual impairment [Not Recovered/Not Resolved]
  - Cartilage injury [Unknown]

NARRATIVE: CASE EVENT DATE: 20171015
